FAERS Safety Report 13205795 (Version 1)
Quarter: 2017Q1

REPORT INFORMATION
  Report Type: Spontaneous
  Country: US (occurrence: US)
  Receive Date: 20170208
  Receipt Date: 20170208
  Transmission Date: 20170428
  Serious: Yes (Hospitalization)
  Sender: FDA-Public Use
  Company Number: None

PATIENT
  Age: 7 Year
  Sex: Male
  Weight: 24 kg

DRUGS (1)
  1. ONCASPAR [Suspect]
     Active Substance: PEGASPARGASE
     Dosage: 2200 UNIT
     Dates: end: 20170106

REACTIONS (4)
  - Cerebrovascular accident [None]
  - Subdural haematoma [None]
  - Reversible cerebral vasoconstriction syndrome [None]
  - Medical device site haemorrhage [None]

NARRATIVE: CASE EVENT DATE: 20170121
